FAERS Safety Report 16968569 (Version 1)
Quarter: 2019Q4

REPORT INFORMATION
  Report Type: Spontaneous
  Country: DE (occurrence: DE)
  Receive Date: 20191029
  Receipt Date: 20191029
  Transmission Date: 20200122
  Serious: Yes (Other)
  Sender: FDA-Public Use
  Company Number: DE-009507513-1910DEU015421

PATIENT
  Age: 55 Year

DRUGS (7)
  1. CARBOPLATIN. [Suspect]
     Active Substance: CARBOPLATIN
     Indication: LUNG NEOPLASM MALIGNANT
     Dosage: FIRST-LINE THERAPY
  2. DOCETAXEL. [Suspect]
     Active Substance: DOCETAXEL
     Indication: LUNG NEOPLASM MALIGNANT
     Dosage: 2 CYCLES, SECOND-LINE THERAPY
     Dates: start: 20180123, end: 20180213
  3. DOCETAXEL. [Suspect]
     Active Substance: DOCETAXEL
     Dosage: SECOND-LINE THERAPY
     Dates: start: 20190912, end: 20191007
  4. PEMBROLIZUMAB. [Suspect]
     Active Substance: PEMBROLIZUMAB
     Indication: LUNG NEOPLASM MALIGNANT
     Dosage: FIRST-LINE THERAPY
  5. PEMETREXED DISODIUM [Suspect]
     Active Substance: PEMETREXED DISODIUM
     Indication: LUNG NEOPLASM MALIGNANT
     Dosage: FIRST-LINE THERAPY
  6. NINTEDANIB [Suspect]
     Active Substance: NINTEDANIB
     Indication: LUNG NEOPLASM MALIGNANT
     Dosage: 2 CYCLES, SECOND-LINE THERAPY
     Dates: start: 20180123, end: 20180213
  7. NINTEDANIB [Suspect]
     Active Substance: NINTEDANIB
     Dosage: SECOND-LINE THERAPY
     Dates: start: 20190912, end: 20191007

REACTIONS (2)
  - Malignant neoplasm progression [Unknown]
  - Neuropathy peripheral [Unknown]

NARRATIVE: CASE EVENT DATE: 2018
